FAERS Safety Report 15580988 (Version 3)
Quarter: 2018Q4

REPORT INFORMATION
  Report Type: Report from Study
  Country: GB (occurrence: GB)
  Receive Date: 20181102
  Receipt Date: 20181120
  Transmission Date: 20190205
  Serious: Yes (Other)
  Sender: FDA-Public Use
  Company Number: PHHY2018GB143621

PATIENT
  Age: 29 Year
  Sex: Male

DRUGS (2)
  1. COSENTYX [Suspect]
     Active Substance: SECUKINUMAB
     Indication: ANKYLOSING SPONDYLITIS
     Dosage: 150 MG, QW (FOR 4 WEEKS)
     Route: 058
     Dates: start: 20181026
  2. COSENTYX [Suspect]
     Active Substance: SECUKINUMAB
     Dosage: 150 MG, QMO
     Route: 058

REACTIONS (7)
  - Productive cough [Unknown]
  - Skin fissures [Unknown]
  - Nasopharyngitis [Unknown]
  - Nausea [Recovered/Resolved]
  - Fatigue [Unknown]
  - Dizziness [Recovered/Resolved]
  - Eczema [Unknown]

NARRATIVE: CASE EVENT DATE: 201810
